FAERS Safety Report 6516881-1 (Version None)
Quarter: 2009Q4

REPORT INFORMATION
  Report Type: 
  Country: None (occurrence: None)
  Receive Date: 20091223
  Receipt Date: 20091215
  Transmission Date: 20100525
  Serious: Yes (Other)
  Sender: FDA-Public Use
  Company Number: FR-SANOFI-AVENTIS-2009SA009614

PATIENT
  Age: 52 Year
  Sex: Female

DRUGS (10)
  1. CLOPIDOGREL BISULFATE [Suspect]
     Dosage: DOSE:1 UNIT(S)
     Route: 048
     Dates: start: 20090501
  2. CLOPIDOGREL BISULFATE [Suspect]
     Indication: STENT PLACEMENT
     Dosage: DOSE:1 UNIT(S)
     Route: 048
     Dates: start: 20090501
  3. KARDEGIC [Suspect]
     Indication: DRUG USE FOR UNKNOWN INDICATION
     Route: 048
     Dates: start: 20090501
  4. CRESTOR [Suspect]
     Indication: DRUG USE FOR UNKNOWN INDICATION
     Route: 065
     Dates: start: 20090101
  5. ORACILLINE [Concomitant]
     Indication: DRUG USE FOR UNKNOWN INDICATION
  6. ODRIK [Concomitant]
     Indication: DRUG USE FOR UNKNOWN INDICATION
  7. CARDENSIEL [Concomitant]
     Indication: DRUG USE FOR UNKNOWN INDICATION
  8. DIGOXIN [Concomitant]
     Indication: DRUG USE FOR UNKNOWN INDICATION
  9. POTASSIUM [Concomitant]
     Indication: DRUG USE FOR UNKNOWN INDICATION
  10. LASILIX [Concomitant]
     Indication: DRUG USE FOR UNKNOWN INDICATION

REACTIONS (4)
  - BLOOD CREATINE PHOSPHOKINASE INCREASED [None]
  - BLOOD LACTATE DEHYDROGENASE INCREASED [None]
  - CONDITION AGGRAVATED [None]
  - MYALGIA [None]
